FAERS Safety Report 23906061 (Version 2)
Quarter: 2024Q2

REPORT INFORMATION
  Report Type: Report from Study
  Country: GB (occurrence: GB)
  Receive Date: 20240527
  Receipt Date: 20240603
  Transmission Date: 20240716
  Serious: Yes (Other)
  Sender: FDA-Public Use
  Company Number: GB-TAKEDA-2024TUS047372

PATIENT
  Age: 48 Year
  Sex: Female
  Weight: 83 kg

DRUGS (4)
  1. ADAMTS13, RECOMBINANT-KRHN [Suspect]
     Active Substance: ADAMTS13, RECOMBINANT-KRHN
     Indication: Thrombotic thrombocytopenic purpura
     Dosage: UNK UNK, 2/WEEK
     Route: 042
     Dates: start: 20230921
  2. LEVOTHYROXINE [Concomitant]
     Active Substance: LEVOTHYROXINE\LEVOTHYROXINE SODIUM
     Indication: Hypothyroidism
     Dosage: 125 MILLIGRAM, QD
     Route: 048
  3. PROMETHAZINE [Concomitant]
     Active Substance: PROMETHAZINE HYDROCHLORIDE
     Indication: Insomnia
     Dosage: 25 MILLIGRAM, QD
     Route: 048
  4. PROMETHAZINE [Concomitant]
     Active Substance: PROMETHAZINE HYDROCHLORIDE
     Indication: Anxiety

REACTIONS (3)
  - Neoplasm malignant [Unknown]
  - Headache [Recovered/Resolved]
  - Extra dose administered [Unknown]

NARRATIVE: CASE EVENT DATE: 20240508
